FAERS Safety Report 8169764-8 (Version None)
Quarter: 2012Q1

REPORT INFORMATION
  Report Type: 
  Country: None (occurrence: None)
  Receive Date: 20120228
  Receipt Date: 20120224
  Transmission Date: 20120608
  Serious: Yes (Other)
  Sender: FDA-Public Use
  Company Number: US-JNJFOC-20120213252

PATIENT
  Age: 70 Year

DRUGS (6)
  1. HYDROMORPHONE HCL [Concomitant]
     Indication: PAIN
     Route: 065
  2. BUPIVACAINE HCL [Concomitant]
     Indication: PAIN
     Route: 065
  3. MORPHINE [Concomitant]
     Indication: PAIN
     Route: 065
  4. NUCYNTA [Suspect]
     Indication: PAIN
     Route: 048
  5. MS CONTIN [Concomitant]
     Indication: PAIN
     Route: 048
  6. MORPHINE SULFATE [Concomitant]
     Indication: PAIN
     Route: 048

REACTIONS (1)
  - PSYCHOTIC DISORDER [None]
